FAERS Safety Report 7623430-3 (Version None)
Quarter: 2011Q3

REPORT INFORMATION
  Report Type: 
  Country: None (occurrence: None)
  Receive Date: 20110720
  Receipt Date: 20110705
  Transmission Date: 20111222
  Serious: Yes (Hospitalization)
  Sender: FDA-Public Use
  Company Number: US-SANOFI-AVENTIS-2011SA044458

PATIENT
  Age: 71 Year
  Sex: Female
  Weight: 80 kg

DRUGS (10)
  1. ATORVASTATIN [Concomitant]
     Route: 065
  2. ADVAIR DISKUS 100/50 [Concomitant]
     Route: 065
     Dates: end: 20110511
  3. THIAZIDES [Concomitant]
     Route: 065
     Dates: end: 20110511
  4. METOPROLOL TARTRATE [Concomitant]
     Route: 065
  5. DILTIAZEM [Concomitant]
     Route: 065
  6. ASPIRIN [Concomitant]
     Route: 065
  7. WARFARIN SODIUM [Concomitant]
     Route: 065
  8. VALSARTAN [Concomitant]
     Route: 065
     Dates: end: 20110511
  9. METFORMIN HCL [Concomitant]
     Route: 065
  10. DRONEDARONE HCL [Suspect]
     Indication: ATRIAL FIBRILLATION
     Route: 048
     Dates: start: 20110414

REACTIONS (2)
  - BLOOD PRESSURE DECREASED [None]
  - CARDIAC FAILURE [None]
